FAERS Safety Report 16801563 (Version 1)
Quarter: 2019Q3

REPORT INFORMATION
  Report Type: Spontaneous
  Country: NL (occurrence: DE)
  Receive Date: 20190912
  Receipt Date: 20190912
  Transmission Date: 20191005
  Serious: Yes (Death, Hospitalization, Other)
  Sender: FDA-Public Use
  Company Number: DE-FRESENIUS KABI-FK201909911

PATIENT
  Age: 73 Year
  Sex: Female
  Weight: 64 kg

DRUGS (27)
  1. HYDROCORTISONE/CIPROFLOXACIN HYDROCHLORIDE [Suspect]
     Active Substance: CIPROFLOXACIN HYDROCHLORIDE\HYDROCORTISONE
     Indication: CHOLANGITIS
     Dosage: 1 DF, BID
     Route: 042
     Dates: start: 20010426, end: 20010501
  2. METOCLOPRAMIDE HYDROCHLORIDE. [Suspect]
     Active Substance: METOCLOPRAMIDE HYDROCHLORIDE
     Indication: NAUSEA
     Dosage: 1 DF, SINGLE
     Route: 042
     Dates: start: 20010508, end: 20010508
  3. INSULIN [Suspect]
     Active Substance: INSULIN NOS
     Indication: PARENTERAL NUTRITION
     Dosage: UNK
     Route: 042
     Dates: start: 20010415, end: 20010505
  4. AMINOMIX [AMINO ACIDS NOS;ELECTROLYTES NOS;GLUCOSE] [Suspect]
     Active Substance: AMINO ACIDS\DEXTROSE\ELECTROLYTES NOS
     Indication: PARENTERAL NUTRITION
     Dosage: 500ML/DAY
     Route: 042
     Dates: start: 20010415, end: 20010427
  5. PREDNISOLONE SODIUM SUCCINATE [Suspect]
     Active Substance: PREDNISOLONE SODIUM SUCCINATE
     Indication: PRURITUS
     Dosage: 100 MG, QD
     Route: 042
     Dates: start: 20010511, end: 20010511
  6. HYDROCORTISONE/CIPROFLOXACIN HYDROCHLORIDE [Suspect]
     Active Substance: CIPROFLOXACIN HYDROCHLORIDE\HYDROCORTISONE
     Dosage: 500 MG, BID
     Route: 048
     Dates: start: 20010415, end: 20010426
  7. OMEPRAZOLE. [Suspect]
     Active Substance: OMEPRAZOLE
     Indication: PROPHYLAXIS
     Dosage: 1 DF, QD
     Route: 042
     Dates: start: 20010426, end: 20010505
  8. SODIUM CHLORIDE. [Concomitant]
     Active Substance: SODIUM CHLORIDE
     Indication: PRODUCT USED FOR UNKNOWN INDICATION
     Dosage: 100 ML, SINGLE
     Route: 042
     Dates: start: 20010508, end: 20010508
  9. ETILEFRINE [Suspect]
     Active Substance: ETILEFRINE
     Indication: HYPOTENSION
     Dosage: 30 GTT, SINGLE
     Route: 048
     Dates: start: 20010508, end: 20010508
  10. HYMECROMONE [Suspect]
     Active Substance: HYMECROMONE
     Indication: PRODUCT USED FOR UNKNOWN INDICATION
     Dosage: 1 DF, QD
     Route: 042
     Dates: start: 20010510
  11. MEZLOCILLIN SODIUM [Suspect]
     Active Substance: MEZLOCILLIN SODIUM
     Indication: CHOLANGITIS
     Dosage: 2 G, TID
     Route: 042
     Dates: start: 20010428, end: 20010501
  12. DIMENHYDRINATE. [Suspect]
     Active Substance: DIMENHYDRINATE
     Indication: NAUSEA
     Dosage: 1 DF, SINGLE
     Route: 042
     Dates: start: 20010508, end: 20010508
  13. PANTOPRAZOLE [Suspect]
     Active Substance: PANTOPRAZOLE
     Indication: PROPHYLAXIS
     Dosage: 20 MG, QD
     Route: 048
     Dates: start: 20010506
  14. CALCIUM ACETATE/POTASSIUM ACETATE/SODIUM ACETATE/MAGNESIUM ACETATE/SODIUM CHLORIDE [Concomitant]
     Indication: PRODUCT USED FOR UNKNOWN INDICATION
     Dosage: 250ML/DAY
     Route: 042
     Dates: start: 20010415, end: 20010505
  15. SPIRONOLACTONE. [Suspect]
     Active Substance: SPIRONOLACTONE
     Indication: OEDEMA
     Dosage: 100 MG, QD
     Route: 048
     Dates: start: 20010415, end: 20010425
  16. METOCLOPRAMIDE HYDROCHLORIDE. [Suspect]
     Active Substance: METOCLOPRAMIDE HYDROCHLORIDE
     Indication: NAUSEA
     Dosage: 20 GTT, SINGLE
     Route: 048
     Dates: start: 20010508, end: 20010508
  17. INSULIN HUMAN INJECTION, ISOPHANE [Suspect]
     Active Substance: INSULIN HUMAN
     Indication: DIABETES MELLITUS
     Dosage: 16IU-12IU-8IU
     Route: 058
     Dates: start: 20010415, end: 20010426
  18. POTASSIUM CHLORIDE. [Concomitant]
     Active Substance: POTASSIUM CHLORIDE
     Indication: HYPOKALAEMIA
     Dosage: UNK
     Route: 065
     Dates: start: 20010426, end: 20010501
  19. GLUCOSE (NOT SPECIFIED) [Suspect]
     Active Substance: DEXTROSE
     Indication: PARENTERAL NUTRITION
     Dosage: 500MG/DAY
     Route: 042
     Dates: start: 20010415, end: 20010505
  20. PENTAZOCINE [Suspect]
     Active Substance: PENTAZOCINE
     Indication: PAIN
     Dosage: 1 DF, SINGLE
     Route: 042
     Dates: start: 20010508, end: 20010508
  21. POTASSIUM CHLORIDE. [Concomitant]
     Active Substance: POTASSIUM CHLORIDE
     Indication: HYPOKALAEMIA
     Dosage: 1 DF, QD
     Route: 048
     Dates: start: 20010506
  22. POTASSIUM CHLORIDE. [Concomitant]
     Active Substance: POTASSIUM CHLORIDE
     Indication: HYPOKALAEMIA
     Dosage: UNK
     Route: 042
     Dates: start: 20010426, end: 20010501
  23. CARBIMAZOLE [Suspect]
     Active Substance: CARBIMAZOLE
     Indication: HYPERTHYROIDISM
     Dosage: 5 MG, QD
     Route: 048
  24. PANTOPRAZOLE [Suspect]
     Active Substance: PANTOPRAZOLE
     Dosage: 20 MG, QD
     Route: 048
     Dates: start: 20010415, end: 20010426
  25. LOPERAMIDE [Suspect]
     Active Substance: LOPERAMIDE
     Indication: DIARRHOEA
     Dosage: 1 DF, SINGLE
     Route: 048
     Dates: start: 20010430, end: 20010430
  26. CLOPIDOGREL BISULFATE. [Suspect]
     Active Substance: CLOPIDOGREL BISULFATE
     Indication: CHOLANGITIS
     Dosage: 1 DF, BID
     Route: 042
     Dates: start: 20010426, end: 20010501
  27. CLOPIDOGREL BISULFATE. [Suspect]
     Active Substance: CLOPIDOGREL BISULFATE
     Indication: CHOLANGITIS
     Dosage: 400 MG, BID
     Route: 048
     Dates: start: 20010415, end: 20010426

REACTIONS (11)
  - Stevens-Johnson syndrome [Fatal]
  - Toxic epidermal necrolysis [Fatal]
  - Cardiac arrest [Fatal]
  - Pruritus [Unknown]
  - Rash [Unknown]
  - Blister [Unknown]
  - Conjunctivitis [Unknown]
  - Skin lesion [Unknown]
  - Circulatory collapse [Fatal]
  - Lip erosion [Unknown]
  - Skin exfoliation [Unknown]

NARRATIVE: CASE EVENT DATE: 20010511
